FAERS Safety Report 9536954 (Version 1)
Quarter: 2013Q3

REPORT INFORMATION
  Report Type: Spontaneous
  Country: FR (occurrence: FR)
  Receive Date: 20130919
  Receipt Date: 20130919
  Transmission Date: 20140515
  Serious: Yes (Death, Other)
  Sender: FDA-Public Use
  Company Number: FR-BAXTER-2013BAX035668

PATIENT
  Age: 39 Year
  Sex: Female

DRUGS (2)
  1. ENDOXAN 2000 MG, LYOPHILISAT POUR SOLUTION INJECTABLE [Suspect]
     Indication: PRODUCT USED FOR UNKNOWN INDICATION
     Route: 042
     Dates: start: 20120722, end: 20120723
  2. ENDOXAN 2000 MG, LYOPHILISAT POUR SOLUTION INJECTABLE [Suspect]
     Route: 042
     Dates: start: 20120729, end: 20120730

REACTIONS (4)
  - Myocarditis [Fatal]
  - Ejection fraction decreased [Fatal]
  - Pericarditis [Fatal]
  - Febrile bone marrow aplasia [Unknown]
